FAERS Safety Report 9635887 (Version 2)
Quarter: 2014Q1

REPORT INFORMATION
  Report Type: Report from Study
  Country: US (occurrence: US)
  Receive Date: 20131021
  Receipt Date: 20140219
  Transmission Date: 20141002
  Serious: Yes (Hospitalization, Other)
  Sender: FDA-Public Use
  Company Number: US-ACTELION-A-US2013-90142

PATIENT
  Age: 65 Year
  Sex: Male

DRUGS (1)
  1. VENTAVIS [Suspect]
     Indication: COR PULMONALE CHRONIC
     Dosage: UNK
     Route: 055

REACTIONS (5)
  - Skin cancer [Not Recovered/Not Resolved]
  - Skin operation [Not Recovered/Not Resolved]
  - Fall [Unknown]
  - Haematoma evacuation [Unknown]
  - Haemorrhage [Unknown]
